FAERS Safety Report 7976771-4 (Version None)
Quarter: 2011Q4

REPORT INFORMATION
  Report Type: 
  Country: None (occurrence: None)
  Receive Date: 20111213
  Receipt Date: 20111108
  Transmission Date: 20120403
  Serious: No
  Sender: FDA-Public Use
  Company Number: US-AMGEN-USASP2011058651

PATIENT
  Age: 11 Year
  Sex: Male

DRUGS (1)
  1. ENBREL [Suspect]
     Indication: JUVENILE ARTHRITIS
     Dosage: 0.6 ML, 2 TIMES/WK
     Dates: start: 20111014

REACTIONS (4)
  - PAIN [None]
  - MUSCULOSKELETAL CHEST PAIN [None]
  - BODY TEMPERATURE [None]
  - EAR INFECTION [None]
